FAERS Safety Report 24749323 (Version 1)
Quarter: 2024Q4

REPORT INFORMATION
  Report Type: Report from Study
  Country: MX (occurrence: MX)
  Receive Date: 20241218
  Receipt Date: 20241218
  Transmission Date: 20250114
  Serious: Yes (Death, Other)
  Sender: BIOVITRUM
  Company Number: MX-AstraZeneca-CH-00763130A

PATIENT
  Age: 39 Day
  Sex: Female
  Weight: 1.125 kg

DRUGS (1)
  1. PALIVIZUMAB [Suspect]
     Active Substance: PALIVIZUMAB
     Indication: Antiviral prophylaxis
     Dosage: 1ST DOSE, 0.16 MILLILITER, QMONTH
     Route: 030
     Dates: end: 20241108

REACTIONS (5)
  - Fluid retention [Fatal]
  - Respiratory arrest [Fatal]
  - Liver injury [Not Recovered/Not Resolved]
  - Haemorrhage [Not Recovered/Not Resolved]
  - Pneumonia [Not Recovered/Not Resolved]

NARRATIVE: CASE EVENT DATE: 20241101
